APPROVED DRUG PRODUCT: HYDROCODONE BITARTRATE AND ACETAMINOPHEN
Active Ingredient: ACETAMINOPHEN; HYDROCODONE BITARTRATE
Strength: 300MG;10MG
Dosage Form/Route: TABLET;ORAL
Application: A208540 | Product #003
Applicant: ALVOGEN INC
Approved: Nov 8, 2018 | RLD: No | RS: No | Type: DISCN